FAERS Safety Report 10089565 (Version 1)
Quarter: 2014Q2

REPORT INFORMATION
  Report Type: Spontaneous
  Country: FR (occurrence: FR)
  Receive Date: 20140421
  Receipt Date: 20140421
  Transmission Date: 20141212
  Serious: Yes (Life-Threatening)
  Sender: FDA-Public Use
  Company Number: PHHY2014FR047890

PATIENT
  Age: 78 Year
  Sex: Male

DRUGS (8)
  1. EXELON PATCH [Suspect]
     Dosage: 18 MG (9.5 MG/24 HOURS), DAILY
     Route: 062
  2. EXELON PATCH [Suspect]
     Dosage: 9 MG (4.6MG/24 HOURS), DAILY
     Route: 062
     Dates: start: 20140217
  3. TRILEPTAL [Suspect]
     Dosage: 2 DF, DAILY
     Route: 048
     Dates: end: 20140217
  4. LOXEN [Suspect]
     Indication: HYPERTENSION
     Dosage: 20 MG, BID
     Route: 048
     Dates: start: 20140216, end: 20140216
  5. TIAPRIDAL [Suspect]
     Dosage: 20 DRP, DAILY
     Route: 048
     Dates: end: 20140217
  6. AMLOR [Concomitant]
     Dosage: UNK UKN, UNK
  7. KEPPRA [Concomitant]
     Dosage: UNK UKN, UNK
  8. LASILIX [Concomitant]
     Dosage: UNK UKN, UNK

REACTIONS (4)
  - Torsade de pointes [Recovered/Resolved with Sequelae]
  - Cardio-respiratory arrest [Recovered/Resolved with Sequelae]
  - Bradycardia [Recovered/Resolved with Sequelae]
  - Ventricular tachyarrhythmia [Recovered/Resolved with Sequelae]
